FAERS Safety Report 25343577 (Version 1)
Quarter: 2025Q2

REPORT INFORMATION
  Report Type: Spontaneous
  Country: US (occurrence: US)
  Receive Date: 20250521
  Receipt Date: 20250521
  Transmission Date: 20250717
  Serious: Yes (Disabling)
  Sender: BIOMARIN
  Company Number: US-BIOMARINAP-US-2025-165997

PATIENT

DRUGS (1)
  1. VOXZOGO [Suspect]
     Active Substance: VOSORITIDE
     Indication: Thanatophoric dysplasia
     Dosage: 0.2 MILLIGRAM, QD
     Route: 058
     Dates: start: 20250306

REACTIONS (5)
  - Pain [Recovering/Resolving]
  - Irritability [Recovering/Resolving]
  - Emotional distress [Recovering/Resolving]
  - Blood alkaline phosphatase increased [Recovering/Resolving]
  - Off label use [Unknown]

NARRATIVE: CASE EVENT DATE: 20250321
